FAERS Safety Report 5621646-9 (Version None)
Quarter: 2008Q1

REPORT INFORMATION
  Report Type: 
  Country: None (occurrence: None)
  Receive Date: 20080211
  Receipt Date: 20080131
  Transmission Date: 20080703
  Serious: Yes (Other)
  Sender: FDA-Public Use
  Company Number: US-JNJFOC-20080200293

PATIENT
  Age: 32 Year
  Sex: Female

DRUGS (3)
  1. REMICADE [Suspect]
     Indication: CROHN'S DISEASE
     Route: 042
  2. WELLBUTRIN [Concomitant]
  3. NICOTINE PATCHES [Concomitant]

REACTIONS (3)
  - FURUNCLE [None]
  - SMEAR CERVIX ABNORMAL [None]
  - SYSTEMIC LUPUS ERYTHEMATOSUS [None]
